FAERS Safety Report 5333211-1 (Version None)
Quarter: 2007Q2

REPORT INFORMATION
  Report Type: 
  Country: None (occurrence: None)
  Receive Date: 20070524
  Receipt Date: 20070516
  Transmission Date: 20071010
  Serious: Yes (Other)
  Sender: FDA-Public Use
  Company Number: PHBS2007JP06206

PATIENT
  Age: 76 Year
  Sex: Male

DRUGS (3)
  1. VOLTAREN [Suspect]
     Route: 048
  2. MEVALOTIN [Concomitant]
     Route: 048
  3. LOXONIN [Concomitant]
     Route: 048

REACTIONS (2)
  - AXILLARY PAIN [None]
  - RHABDOMYOLYSIS [None]
